FAERS Safety Report 24323746 (Version 4)
Quarter: 2025Q1

REPORT INFORMATION
  Report Type: Spontaneous
  Country: FR (occurrence: FR)
  Receive Date: 20240916
  Receipt Date: 20250217
  Transmission Date: 20250408
  Serious: Yes (Other)
  Sender: AUROBINDO
  Company Number: FR-AstraZeneca-2024A050798

PATIENT
  Age: 50 Year
  Sex: Female
  Weight: 135 kg

DRUGS (16)
  1. ESOMEPRAZOLE [Interacting]
     Active Substance: ESOMEPRAZOLE
     Indication: Product used for unknown indication
     Route: 048
  2. OMEPRAZOLE [Interacting]
     Active Substance: OMEPRAZOLE
     Indication: Gastrooesophageal reflux disease
     Route: 065
  3. RAMIPRIL [Interacting]
     Active Substance: RAMIPRIL
     Indication: Hypertension
     Route: 065
  4. SPIRONOLACTONE [Interacting]
     Active Substance: SPIRONOLACTONE
     Indication: Hypertension
     Route: 065
  5. PAZOPANIB [Interacting]
     Active Substance: PAZOPANIB
     Indication: Myxofibrosarcoma
     Dosage: 1200 MILLIGRAM, ONCE A DAY
     Route: 065
  6. PAZOPANIB [Interacting]
     Active Substance: PAZOPANIB
     Dosage: 800 MILLIGRAM, ONCE A DAY
     Route: 065
  7. PAZOPANIB [Interacting]
     Active Substance: PAZOPANIB
     Dosage: 600 MILLIGRAM, ONCE A DAY
     Route: 065
  8. PAZOPANIB [Interacting]
     Active Substance: PAZOPANIB
     Dosage: 600 MILLIGRAM, TWO TIMES A DAY
     Route: 065
  9. ALTHIAZIDE\SPIRONOLACTONE [Suspect]
     Active Substance: ALTHIAZIDE\SPIRONOLACTONE
     Indication: Hypertension
     Route: 065
  10. METHOTREXATE [Interacting]
     Active Substance: METHOTREXATE
     Indication: Rheumatoid arthritis
     Route: 048
  11. PROPRANOLOL [Concomitant]
     Active Substance: PROPRANOLOL HYDROCHLORIDE
     Indication: Hypertension
     Route: 065
  12. LEVOTHYROXINE [Concomitant]
     Active Substance: LEVOTHYROXINE
     Indication: Hypothyroidism
     Route: 065
  13. DESLORATADINE [Concomitant]
     Active Substance: DESLORATADINE
     Indication: Product used for unknown indication
     Route: 065
  14. CHOLECALCIFEROL [Concomitant]
     Active Substance: CHOLECALCIFEROL
     Indication: Vitamin supplementation
     Route: 065
  15. TINZAPARIN [Concomitant]
     Active Substance: TINZAPARIN
     Indication: Product used for unknown indication
     Route: 065
  16. FOLIC ACID [Concomitant]
     Active Substance: FOLIC ACID
     Indication: Vitamin supplementation
     Route: 065

REACTIONS (10)
  - Drug level decreased [Unknown]
  - Drug interaction [Unknown]
  - Melaena [Unknown]
  - Drug ineffective [Unknown]
  - Abdominal pain upper [Unknown]
  - Blood potassium increased [Unknown]
  - Haematotoxicity [Unknown]
  - Nausea [Unknown]
  - Loss of therapeutic response [Unknown]
  - Drug level below therapeutic [Unknown]
